FAERS Safety Report 7768450-3 (Version None)
Quarter: 2011Q3

REPORT INFORMATION
  Report Type: 
  Country: None (occurrence: None)
  Receive Date: 20110922
  Receipt Date: 20110429
  Transmission Date: 20111222
  Serious: Yes (Hospitalization)
  Sender: FDA-Public Use
  Company Number: US-ASTRAZENECA-2011SE25117

PATIENT
  Age: 11714 Day
  Sex: Female

DRUGS (9)
  1. SEROQUEL [Suspect]
     Indication: BIPOLAR DISORDER
     Route: 048
  2. CALCIUM CARBONATE [Concomitant]
  3. LITHIUM CARBONATE [Concomitant]
  4. MAGNESIUM [Concomitant]
  5. SEROQUEL [Suspect]
     Indication: SCHIZOPHRENIA
     Route: 048
  6. MELATONIN [Concomitant]
  7. FLUID PILL [Concomitant]
     Dosage: THREE TIMES A DAY
  8. VALIUM [Concomitant]
  9. RISPERDAL [Concomitant]
     Route: 030

REACTIONS (1)
  - CARDIAC FAILURE CONGESTIVE [None]
